FAERS Safety Report 13605313 (Version 1)
Quarter: 2017Q2

REPORT INFORMATION
  Report Type: Spontaneous
  Country: US (occurrence: US)
  Receive Date: 20170602
  Receipt Date: 20170602
  Transmission Date: 20170830
  Serious: No
  Sender: FDA-Public Use
  Company Number: US-NOVEN PHARMACEUTICALS, INC.-US2016001694

PATIENT

DRUGS (3)
  1. DAYTRANA [Suspect]
     Active Substance: METHYLPHENIDATE
     Indication: ATTENTION DEFICIT/HYPERACTIVITY DISORDER
     Dosage: 30 MG, UNKNOWN
     Route: 062
     Dates: start: 2014, end: 201606
  2. DAYTRANA [Suspect]
     Active Substance: METHYLPHENIDATE
     Dosage: 30 MG, UNK
     Route: 062
     Dates: start: 2016
  3. DAYTRANA [Suspect]
     Active Substance: METHYLPHENIDATE
     Dosage: 30 MG (EXPIRED BOX), UNK
     Route: 062
     Dates: start: 2016, end: 2016

REACTIONS (5)
  - Drug dispensing error [Unknown]
  - Expired product administered [Recovered/Resolved]
  - Psychomotor hyperactivity [Unknown]
  - Disturbance in attention [Unknown]
  - Drug effect decreased [Recovered/Resolved]

NARRATIVE: CASE EVENT DATE: 2016
